FAERS Safety Report 24423306 (Version 1)
Quarter: 2024Q4

REPORT INFORMATION
  Report Type: Spontaneous
  Country: PL (occurrence: PL)
  Receive Date: 20241010
  Receipt Date: 20241010
  Transmission Date: 20250115
  Serious: Yes (Other)
  Sender: BAXTER
  Company Number: None

PATIENT
  Age: 14 Year
  Sex: Female
  Weight: 40 kg

DRUGS (5)
  1. IFOSFAMIDE [Suspect]
     Active Substance: IFOSFAMIDE
     Indication: Magnetic resonance imaging
     Dosage: 4110 MG CENTRAL VENOUS INFUSION
     Route: 065
     Dates: start: 20200723, end: 20200724
  2. POLYETHYLENE GLYCOL 4000 [Concomitant]
     Active Substance: POLYETHYLENE GLYCOL 4000
     Dosage: 30MG/DB P.O.
     Route: 048
     Dates: start: 20200723, end: 20200724
  3. Hydroxyzinum vp [Concomitant]
     Dosage: 30MG/DB. P.O.
     Route: 048
     Dates: start: 20200723, end: 20200724
  4. TORECAN [Concomitant]
     Active Substance: THIETHYLPERAZINE MALATE
     Dosage: 195MG/DB, P.O.
     Route: 048
     Dates: start: 20200723, end: 20200724
  5. ZOFRAN [Concomitant]
     Active Substance: ONDANSETRON HYDROCHLORIDE
     Dosage: 8 MG, EVERY 8 HRS
     Route: 041
     Dates: start: 20200723, end: 20200725

REACTIONS (3)
  - Trismus [Recovered/Resolved]
  - Muscle spasms [Recovered/Resolved]
  - Neurotoxicity [Recovered/Resolved]

NARRATIVE: CASE EVENT DATE: 20200724
